FAERS Safety Report 6011873-3 (Version None)
Quarter: 2008Q4

REPORT INFORMATION
  Report Type: 
  Country: None (occurrence: None)
  Receive Date: 20081216
  Receipt Date: 20080613
  Transmission Date: 20090506
  Serious: Yes (Hospitalization)
  Sender: FDA-Public Use
  Company Number: US-WYE-H04583708

PATIENT
  Age: 47 Year
  Sex: Female
  Weight: 158.9 kg

DRUGS (5)
  1. EFFEXOR XR [Suspect]
     Indication: MAJOR DEPRESSION
     Dosage: 150 MG 2X PER 1 DAY, ORAL
     Route: 048
     Dates: start: 20030301
  2. ALCOHOL (ETHANOL, ) [Suspect]
     Dosage: OVERDOSE AMOUNT UNSPECIFIED
     Dates: start: 20071001, end: 20071001
  3. AMBIEN [Suspect]
     Indication: INSOMNIA
     Dosage: OVERDOSE AMOUNT UNSPECIFIED
     Dates: start: 20071001, end: 20071001
  4. LEVOTHYROXINE SODIUM [Concomitant]
  5. LISINOPRIL [Concomitant]

REACTIONS (2)
  - INTENTIONAL OVERDOSE [None]
  - SUICIDE ATTEMPT [None]
